FAERS Safety Report 14605300 (Version 8)
Quarter: 2019Q4

REPORT INFORMATION
  Report Type: Report from Study
  Country: US (occurrence: US)
  Receive Date: 20180306
  Receipt Date: 20191126
  Transmission Date: 20200122
  Serious: Yes (Death, Hospitalization)
  Sender: FDA-Public Use
  Company Number: US-ACTELION-A-NJ2018-168567

PATIENT
  Age: 80 Year
  Sex: Female
  Weight: 68.48 kg

DRUGS (4)
  1. UPTRAVI [Suspect]
     Active Substance: SELEXIPAG
     Dosage: 800 MCG, BID
     Route: 048
  2. UPTRAVI [Suspect]
     Active Substance: SELEXIPAG
     Dosage: 200 MCG, BID
     Route: 048
  3. ADCIRCA [Concomitant]
     Active Substance: TADALAFIL
  4. UPTRAVI [Suspect]
     Active Substance: SELEXIPAG
     Indication: PULMONARY HYPERTENSION
     Dosage: 400 MCG, BID
     Route: 048

REACTIONS (7)
  - Cerebrovascular accident [Unknown]
  - Cardiac failure congestive [Unknown]
  - Unevaluable event [Fatal]
  - Memory impairment [Unknown]
  - Cardiac arrest [Fatal]
  - Hospitalisation [Unknown]
  - Rehabilitation therapy [Not Recovered/Not Resolved]

NARRATIVE: CASE EVENT DATE: 20191026
